FAERS Safety Report 9983550 (Version 3)
Quarter: 2014Q1

REPORT INFORMATION
  Report Type: Report from Study
  Country: TW (occurrence: TW)
  Receive Date: 20140307
  Receipt Date: 20140318
  Transmission Date: 20141002
  Serious: Yes (Other)
  Sender: FDA-Public Use
  Company Number: PHHY2013TW091849

PATIENT
  Age: 79 Year
  Sex: Female
  Weight: 47 kg

DRUGS (2)
  1. ACLASTA/ZOLEDRONATE [Suspect]
     Dosage: 0.05 MG/ML, UNK (5MG/100ML)
     Route: 042
     Dates: start: 20120528
  2. SYNTAM [Concomitant]
     Indication: POST CONCUSSION SYNDROME
     Dosage: 1200 MG, UNK
     Dates: start: 20120730

REACTIONS (13)
  - Cerebral atrophy [Recovered/Resolved]
  - Cerebral small vessel ischaemic disease [Recovered/Resolved]
  - Lacunar infarction [Recovered/Resolved]
  - Loss of consciousness [Recovered/Resolved]
  - Basal ganglia infarction [Recovered/Resolved]
  - Cerebral ventricle dilatation [Recovered/Resolved]
  - White matter lesion [Recovered/Resolved]
  - Syncope [Recovered/Resolved]
  - Spinal fracture [Recovered/Resolved]
  - Head injury [Recovered/Resolved]
  - Post concussion syndrome [Recovered/Resolved]
  - Concussion [Recovered/Resolved]
  - Dizziness [Recovered/Resolved]
